FAERS Safety Report 6425127-4 (Version None)
Quarter: 2009Q4

REPORT INFORMATION
  Report Type: 
  Country: None (occurrence: None)
  Receive Date: 20091029
  Receipt Date: 20090610
  Transmission Date: 20100525
  Serious: Yes (Hospitalization)
  Sender: FDA-Public Use
  Company Number: D-09-0026

PATIENT
  Age: 81 Year
  Sex: Male
  Weight: 83 kg

DRUGS (4)
  1. JANTOVEN [Suspect]
     Indication: ATRIAL FIBRILLATION
     Dosage: SEE IMAGE
     Route: 048
     Dates: start: 20090210, end: 20090531
  2. BLIND (BI 1744) (BOEHRINGER INGELHEIM) [Suspect]
     Indication: CHRONIC OBSTRUCTIVE PULMONARY DISEASE
     Dosage: 5 MCG [2 ACTUATIONS OF 2.5 MCG] AND 10 MCG [2 ACTUATIONS OF 5 MCG], INHALATION
     Route: 055
     Dates: start: 20090421
  3. SPIRIVA [Concomitant]
  4. PULMICORT [Concomitant]

REACTIONS (1)
  - HAEMOPTYSIS [None]
